FAERS Safety Report 6976478-6 (Version None)
Quarter: 2010Q3

REPORT INFORMATION
  Report Type: 
  Country: None (occurrence: None)
  Receive Date: 20100910
  Receipt Date: 20100831
  Transmission Date: 20110219
  Serious: Yes (Other)
  Sender: FDA-Public Use
  Company Number: US-PFIZER INC-2010109686

PATIENT
  Sex: Female
  Weight: 58.957 kg

DRUGS (2)
  1. FLAGYL [Suspect]
     Indication: TOOTH INFECTION
     Dosage: 375 MG, 3X/DAY
     Route: 048
     Dates: start: 20100714
  2. PENICILLIN NOS [Concomitant]
     Indication: TOOTH INFECTION

REACTIONS (3)
  - ANXIETY [None]
  - CONFUSIONAL STATE [None]
  - DEPRESSION [None]
